FAERS Safety Report 4846636-5 (Version None)
Quarter: 2005Q4

REPORT INFORMATION
  Report Type: 
  Country: None (occurrence: None)
  Receive Date: 20051202
  Receipt Date: 20051121
  Transmission Date: 20060501
  Serious: Yes (Hospitalization)
  Sender: FDA-Public Use
  Company Number: ST-2005-008715

PATIENT
  Sex: Male

DRUGS (1)
  1. OLMETEC [Suspect]
     Indication: HYPERTENSION
     Dates: start: 20051001

REACTIONS (1)
  - CEREBRAL ISCHAEMIA [None]
